FAERS Safety Report 6741875-0 (Version None)
Quarter: 2010Q2

REPORT INFORMATION
  Report Type: 
  Country: None (occurrence: None)
  Receive Date: 20100526
  Receipt Date: 20100519
  Transmission Date: 20101027
  Serious: Yes (Death, Hospitalization)
  Sender: FDA-Public Use
  Company Number: A0788330A

PATIENT
  Age: 90 Year
  Sex: Female
  Weight: 55.5 kg

DRUGS (11)
  1. AVANDIA [Suspect]
     Indication: DIABETES MELLITUS
     Route: 048
     Dates: start: 20050101, end: 20070501
  2. CARTIA XT [Concomitant]
  3. GLYBURIDE [Concomitant]
  4. METFORMIN HYDROCHLORIDE [Concomitant]
  5. SPIRIVA [Concomitant]
  6. ECOTRIN [Concomitant]
  7. NEURONTIN [Concomitant]
  8. ADVAIR DISKUS 100/50 [Concomitant]
  9. CARDIZEM [Concomitant]
  10. DIABETA [Concomitant]
  11. PEPCID [Concomitant]

REACTIONS (4)
  - CARDIAC ARREST [None]
  - CARDIAC FAILURE CONGESTIVE [None]
  - CARDIOPULMONARY FAILURE [None]
  - TRANSIENT ISCHAEMIC ATTACK [None]
